FAERS Safety Report 4741954-3 (Version None)
Quarter: 2005Q3

REPORT INFORMATION
  Report Type: 
  Country: None (occurrence: None)
  Receive Date: 20050801
  Receipt Date: 20050613
  Transmission Date: 20060218
  Serious: No
  Sender: FDA-Public Use
  Company Number: 2005PV000035

PATIENT
  Age: 55 Year
  Sex: Male
  Weight: 139.7079 kg

DRUGS (8)
  1. BYETTA [Suspect]
     Indication: DIABETES MELLITUS NON-INSULIN-DEPENDENT
     Dosage: 5 UG;BID;SC
     Route: 058
     Dates: start: 20050611
  2. ACTOS [Concomitant]
  3. ACTOS [Concomitant]
  4. NOVOLOG MIX 70/30 [Concomitant]
  5. NOVOLOG MIX 70/30 [Concomitant]
  6. NOVOLOG [Concomitant]
  7. METFORMIN [Concomitant]
  8. METFORMIN HCL [Concomitant]

REACTIONS (5)
  - BLOOD GLUCOSE INCREASED [None]
  - CONSTIPATION [None]
  - FAECES DISCOLOURED [None]
  - FREQUENT BOWEL MOVEMENTS [None]
  - HEADACHE [None]
